FAERS Safety Report 5619279-3 (Version None)
Quarter: 2008Q1

REPORT INFORMATION
  Report Type: 
  Country: None (occurrence: None)
  Receive Date: 20080205
  Receipt Date: 20080108
  Transmission Date: 20080703
  Serious: Yes (Other)
  Sender: FDA-Public Use
  Company Number: DSA_61878_2008

PATIENT

DRUGS (1)
  1. DIASTAT [Suspect]
     Dosage: (5 MG)

REACTIONS (2)
  - MEDICATION ERROR [None]
  - UNDERDOSE [None]
